FAERS Safety Report 4940938-X (Version None)
Quarter: 2006Q1

REPORT INFORMATION
  Report Type: 
  Country: None (occurrence: None)
  Receive Date: 20060313
  Receipt Date: 20060228
  Transmission Date: 20060701
  Serious: Yes (Other)
  Sender: FDA-Public Use
  Company Number: PHEH2006US02721

PATIENT
  Sex: Female

DRUGS (5)
  1. ZOMETA [Suspect]
     Indication: OSTEOPOROSIS
     Dosage: UNK, ONCE YEARLY
  2. SYNTHROID [Concomitant]
  3. OXYCONTIN [Concomitant]
  4. FORTEO [Concomitant]
  5. COZAAR [Concomitant]

REACTIONS (6)
  - BONE DEBRIDEMENT [None]
  - BONE DISORDER [None]
  - BONE SWELLING [None]
  - OSTEOMYELITIS [None]
  - PAIN IN JAW [None]
  - TOOTH EXTRACTION [None]
